FAERS Safety Report 20448903 (Version 2)
Quarter: 2022Q4

REPORT INFORMATION
  Report Type: Spontaneous
  Country: US (occurrence: US)
  Receive Date: 20220209
  Receipt Date: 20221011
  Transmission Date: 20230113
  Serious: No
  Sender: FDA-Public Use
  Company Number: US-SA-SAC20220204000283

PATIENT
  Age: 78 Year
  Sex: Male

DRUGS (1)
  1. DUPIXENT [Suspect]
     Active Substance: DUPILUMAB
     Indication: Dermatitis atopic
     Dosage: 300 MG, QOW
     Route: 058
     Dates: start: 202202

REACTIONS (7)
  - Eczema [Unknown]
  - Groin pain [Unknown]
  - Phlebitis [Unknown]
  - Back pain [Unknown]
  - Arthralgia [Unknown]
  - Dermatitis atopic [Unknown]
  - Drug ineffective [Unknown]
